FAERS Safety Report 24599194 (Version 2)
Quarter: 2025Q1

REPORT INFORMATION
  Report Type: Spontaneous
  Country: US (occurrence: US)
  Receive Date: 20241110
  Receipt Date: 20250312
  Transmission Date: 20250408
  Serious: No
  Sender: SANOFI AVENTIS
  Company Number: US-SA-2024SA313699

PATIENT
  Age: 63 Year
  Sex: Female
  Weight: 96.145 kg

DRUGS (5)
  1. DUPIXENT [Suspect]
     Active Substance: DUPILUMAB
     Indication: Asthma
     Dosage: 300 MG, QOW
     Route: 058
  2. ESTRADIOL TRANSDERMAL SYSTEM [Concomitant]
     Active Substance: ESTRADIOL
  3. ATORVASTATIN [Concomitant]
     Active Substance: ATORVASTATIN
  4. GABAPENTIN [Concomitant]
     Active Substance: GABAPENTIN
  5. AMLODIPINE BESYLATE [Concomitant]
     Active Substance: AMLODIPINE BESYLATE

REACTIONS (6)
  - Sneezing [Recovering/Resolving]
  - Cystitis [Recovered/Resolved]
  - Dysuria [Recovered/Resolved]
  - Micturition urgency [Recovered/Resolved]
  - Injection site erythema [Recovering/Resolving]
  - Injection site pruritus [Recovering/Resolving]

NARRATIVE: CASE EVENT DATE: 20240901
